FAERS Safety Report 6283956-4 (Version None)
Quarter: 2009Q3

REPORT INFORMATION
  Report Type: 
  Country: None (occurrence: None)
  Receive Date: 20090723
  Receipt Date: 20090723
  Transmission Date: 20100115
  Serious: No
  Sender: FDA-Public Use
  Company Number: None

PATIENT
  Sex: Male
  Weight: 76.2043 kg

DRUGS (2)
  1. AMIFOSTINE [Suspect]
     Indication: DRY MOUTH
     Dosage: 500MG M-F SQ, 32 DOSES SINCE 6/2/09
     Route: 058
     Dates: start: 20090602
  2. AMIFOSTINE [Suspect]
     Indication: HEAD AND NECK CANCER
     Dosage: 500MG M-F SQ, 32 DOSES SINCE 6/2/09
     Route: 058
     Dates: start: 20090602

REACTIONS (1)
  - RASH MACULO-PAPULAR [None]
